FAERS Safety Report 8339453-5 (Version None)
Quarter: 2012Q2

REPORT INFORMATION
  Report Type: 
  Country: None (occurrence: None)
  Receive Date: 20120507
  Receipt Date: 20120427
  Transmission Date: 20120825
  Serious: Yes (Hospitalization, Other)
  Sender: FDA-Public Use
  Company Number: US-BAYER-2012-002437

PATIENT
  Age: 42 Year
  Sex: Female
  Weight: 81.633 kg

DRUGS (2)
  1. GENERIC MEDICATION FOR SYNTHROID [Concomitant]
     Dosage: UNK
     Dates: start: 20010101, end: 20080101
  2. YAZ [Suspect]
     Indication: PREMENSTRUAL SYNDROME
     Dosage: UNK
     Dates: start: 20061101, end: 20100301

REACTIONS (5)
  - GALLBLADDER DISORDER [None]
  - CHOLECYSTITIS CHRONIC [None]
  - PAIN [None]
  - FEAR [None]
  - PREMENSTRUAL SYNDROME [None]
